FAERS Safety Report 12277749 (Version 2)
Quarter: 2016Q2

REPORT INFORMATION
  Report Type: Spontaneous
  Country: US (occurrence: US)
  Receive Date: 20160418
  Receipt Date: 20160503
  Transmission Date: 20160815
  Serious: No
  Sender: FDA-Public Use
  Company Number: US-BIOGEN-2016BI00220696

PATIENT
  Sex: Female

DRUGS (3)
  1. AVONEX [Suspect]
     Active Substance: INTERFERON BETA-1A
     Route: 030
     Dates: start: 20080227
  2. AVONEX [Suspect]
     Active Substance: INTERFERON BETA-1A
     Indication: MULTIPLE SCLEROSIS
     Route: 030
     Dates: start: 19981116, end: 20061101
  3. AVONEX [Suspect]
     Active Substance: INTERFERON BETA-1A
     Route: 030
     Dates: start: 20070307, end: 20071107

REACTIONS (13)
  - Pain in extremity [Recovered/Resolved]
  - Upper limb fracture [Recovered/Resolved]
  - Pain [Recovered/Resolved]
  - Injection site pain [Recovered/Resolved]
  - Arthropathy [Unknown]
  - Vision blurred [Recovered/Resolved]
  - Injection site reaction [Recovered/Resolved]
  - Memory impairment [Not Recovered/Not Resolved]
  - Blood triglycerides increased [Recovered/Resolved]
  - Stress [Recovered/Resolved]
  - Chronic paroxysmal hemicrania [Unknown]
  - Contusion [Unknown]
  - Confusional state [Recovered/Resolved]

NARRATIVE: CASE EVENT DATE: 2016
